FAERS Safety Report 11192641 (Version 2)
Quarter: 2015Q3

REPORT INFORMATION
  Report Type: Spontaneous
  Country: US (occurrence: None)
  Receive Date: 20150612
  Receipt Date: 20150720
  Transmission Date: 20151125
  Serious: Yes (Hospitalization)
  Sender: FDA-Public Use
  Company Number: HA15-145-AE

PATIENT
  Sex: Female
  Weight: 95.26 kg

DRUGS (1)
  1. HCB / APAP TABLETS [Suspect]
     Active Substance: ACETAMINOPHEN\HYDROCODONE BITARTRATE
     Indication: PAIN
     Route: 048
     Dates: start: 2000

REACTIONS (23)
  - Brain oedema [None]
  - Visual acuity reduced [None]
  - Weight increased [None]
  - Suicidal behaviour [None]
  - Renal impairment [None]
  - Vomiting projectile [None]
  - Dizziness [None]
  - Aphasia [None]
  - Drug ineffective [None]
  - Malaise [None]
  - Dysgraphia [None]
  - Dysphagia [None]
  - Cerebrovascular accident [None]
  - Incoherent [None]
  - Abasia [None]
  - Coordination abnormal [None]
  - Spinal fracture [None]
  - Mental disorder [None]
  - Anxiety [None]
  - Drug dependence [None]
  - Multiple sclerosis [None]
  - Blood pressure increased [None]
  - Generalised tonic-clonic seizure [None]
